FAERS Safety Report 7757305-6 (Version None)
Quarter: 2011Q3

REPORT INFORMATION
  Report Type: 
  Country: None (occurrence: None)
  Receive Date: 20110916
  Receipt Date: 20110907
  Transmission Date: 20111222
  Serious: Yes (Hospitalization, Other)
  Sender: FDA-Public Use
  Company Number: US-SANOFI-AVENTIS-2011SA059052

PATIENT
  Age: 49 Year
  Sex: Female
  Weight: 105.4 kg

DRUGS (14)
  1. AMLODIPINE [Concomitant]
  2. FOLIC ACID [Concomitant]
  3. TRAZODONE HCL [Concomitant]
  4. HUMALOG [Concomitant]
  5. KLOR-CON [Concomitant]
  6. PLAVIX [Suspect]
     Route: 048
     Dates: start: 20040101, end: 20110825
  7. SIMVASTATIN [Concomitant]
  8. LOSARTAN POTASSIUM [Concomitant]
  9. LANTUS [Concomitant]
  10. METOPROLOL TARTRATE [Concomitant]
  11. FUROSEMIDE [Concomitant]
  12. DICLOFENAC SODIUM [Concomitant]
  13. RANITIDINE [Concomitant]
  14. LOVENOX [Concomitant]

REACTIONS (10)
  - DECREASED APPETITE [None]
  - HAEMORRHAGE [None]
  - CONTUSION [None]
  - GASTRIC ULCER [None]
  - FAECES DISCOLOURED [None]
  - NAUSEA [None]
  - RASH [None]
  - TREMOR [None]
  - DIZZINESS [None]
  - WEIGHT DECREASED [None]
